FAERS Safety Report 19133047 (Version 2)
Quarter: 2021Q2

REPORT INFORMATION
  Report Type: Other
  Country: US (occurrence: US)
  Receive Date: 20210414
  Receipt Date: 20210419
  Transmission Date: 20210717
  Serious: Yes (Death)
  Sender: FDA-Public Use
  Company Number: US-ROCHE-2801953

PATIENT
  Age: 72 Year
  Sex: Male
  Weight: 84.5 kg

DRUGS (9)
  1. AVASTIN [Suspect]
     Active Substance: BEVACIZUMAB
     Indication: METASTASES TO BONE
     Dosage: INFUSE 1268MG INTRAVENOUSLY EVERY 21 DAY(S), 400 MG VIAL
     Route: 042
  2. AVASTIN [Suspect]
     Active Substance: BEVACIZUMAB
     Route: 042
  3. AVASTIN [Suspect]
     Active Substance: BEVACIZUMAB
     Indication: PROSTATE CANCER
     Dosage: INFUSE 1268MG INTRAVENOUSLY EVERY 21 DAY(S), 100 MG VIAL
     Route: 042
  4. PREDNISONE. [Concomitant]
     Active Substance: PREDNISONE
  5. MEGACE [Concomitant]
     Active Substance: MEGESTROL ACETATE
  6. MIRTAZAPINE. [Concomitant]
     Active Substance: MIRTAZAPINE
  7. LYRICA [Concomitant]
     Active Substance: PREGABALIN
  8. PEPCID [Concomitant]
     Active Substance: FAMOTIDINE
  9. TAXOTERE [Concomitant]
     Active Substance: DOCETAXEL

REACTIONS (2)
  - Off label use [Unknown]
  - Death [Fatal]

NARRATIVE: CASE EVENT DATE: 20210404
